FAERS Safety Report 5879345-4 (Version None)
Quarter: 2008Q3

REPORT INFORMATION
  Report Type: 
  Country: None (occurrence: None)
  Receive Date: 20080912
  Receipt Date: 20080904
  Transmission Date: 20090109
  Serious: Yes (Hospitalization)
  Sender: FDA-Public Use
  Company Number: A0722949A

PATIENT
  Age: 56 Year
  Sex: Female
  Weight: 90.9 kg

DRUGS (4)
  1. AVANDIA [Suspect]
     Indication: TYPE 2 DIABETES MELLITUS
     Dosage: 4MG TWICE PER DAY
     Dates: start: 20040401, end: 20070101
  2. GLUCOPHAGE [Concomitant]
     Dates: start: 19990101, end: 20060101
  3. METFORMIN [Concomitant]
     Dates: start: 20040101, end: 20070101
  4. AMARYL [Concomitant]
     Dosage: 4MG PER DAY
     Dates: start: 19990101, end: 20070101

REACTIONS (11)
  - ANAEMIA [None]
  - ARTERIOSCLEROSIS [None]
  - CARDIAC FAILURE CONGESTIVE [None]
  - DEPRESSION [None]
  - DIABETES MELLITUS [None]
  - HYPERTENSION [None]
  - MYOCARDIAL INFARCTION [None]
  - PATHOLOGICAL FRACTURE [None]
  - PULMONARY OEDEMA [None]
  - RESPIRATORY DISTRESS [None]
  - SUPRAVENTRICULAR TACHYCARDIA [None]
